FAERS Safety Report 5201346-X (Version None)
Quarter: 2007Q1

REPORT INFORMATION
  Report Type: 
  Country: None (occurrence: None)
  Receive Date: 20070104
  Receipt Date: 20061219
  Transmission Date: 20070707
  Serious: Yes (Hospitalization)
  Sender: FDA-Public Use
  Company Number: 231136

PATIENT
  Age: 66 Year
  Sex: Female

DRUGS (13)
  1. AVASTIN [Suspect]
     Indication: COLORECTAL CANCER METASTATIC
     Dosage: 5 MG/KG, Q2W, INTRAVENOUS
     Route: 042
     Dates: start: 20060902, end: 20060913
  2. OXALIPLATIN [Suspect]
     Indication: COLORECTAL CANCER METASTATIC
     Dosage: 85 MG/M2, Q2W, INTRAVENOUS
     Route: 042
     Dates: start: 20060802, end: 20060913
  3. CAPECITABINE (CAPECITABINE) [Suspect]
     Indication: COLORECTAL CANCER METASTATIC
     Dosage: 1500 MG/M2, BID, ORAL
     Route: 048
     Dates: start: 20060802, end: 20060920
  4. AVANDIA [Concomitant]
  5. AVALIDE [Concomitant]
  6. GLYBURIDE [Concomitant]
  7. TOPROL-XL [Concomitant]
  8. ASPIRIN [Concomitant]
  9. POTASSIUM CHLORIDE [Concomitant]
  10. LASIX [Concomitant]
  11. CRESTOR [Concomitant]
  12. COMPAZINE [Concomitant]
  13. ZOFRAN [Concomitant]

REACTIONS (11)
  - BLOOD POTASSIUM DECREASED [None]
  - BLOOD UREA INCREASED [None]
  - CANDIDIASIS [None]
  - CULTURE POSITIVE [None]
  - CULTURE STOOL POSITIVE [None]
  - DEHYDRATION [None]
  - DIARRHOEA [None]
  - MUCOSAL INFLAMMATION [None]
  - NAUSEA [None]
  - PANCYTOPENIA [None]
  - VOMITING [None]
